FAERS Safety Report 7033522-8 (Version None)
Quarter: 2010Q4

REPORT INFORMATION
  Report Type: 
  Country: None (occurrence: None)
  Receive Date: 20101007
  Receipt Date: 20100923
  Transmission Date: 20110411
  Serious: Yes (Other)
  Sender: FDA-Public Use
  Company Number: PHEH2006US11386

PATIENT
  Sex: Female
  Weight: 95.692 kg

DRUGS (16)
  1. ZOMETA [Suspect]
     Indication: BREAST CANCER
  2. CHEMOTHERAPEUTICS NOS [Concomitant]
  3. DIGOXIN [Concomitant]
  4. ZOCOR [Concomitant]
  5. LASIX [Concomitant]
     Indication: CARDIAC FAILURE CONGESTIVE
  6. COUMADIN [Concomitant]
  7. DECADRON [Concomitant]
     Dosage: 4 MG, QID
  8. DECADRON [Concomitant]
     Dosage: 4 MG, TID
  9. DECADRON [Concomitant]
     Dosage: 4 MG, BID
  10. NAVELBINE [Concomitant]
  11. DILANTIN                                /AUS/ [Concomitant]
  12. COREG [Concomitant]
  13. LISINOPRIL [Concomitant]
  14. FEMARA [Concomitant]
  15. HERCEPTIN [Concomitant]
  16. TECHNETIUM (99M TC) DMSA [Concomitant]

REACTIONS (73)
  - ABDOMEN CRUSHING [None]
  - ALOPECIA [None]
  - ANHEDONIA [None]
  - ANXIETY [None]
  - ARTHRALGIA [None]
  - ASCITES [None]
  - AXILLARY PAIN [None]
  - BACK PAIN [None]
  - BALANCE DISORDER [None]
  - BONE PAIN [None]
  - BRAIN OEDEMA [None]
  - CARCINOEMBRYONIC ANTIGEN INCREASED [None]
  - CARDIOMYOPATHY [None]
  - CENTRAL NERVOUS SYSTEM LESION [None]
  - CHOLECYSTECTOMY [None]
  - CHOLECYSTITIS CHRONIC [None]
  - CHOLELITHIASIS [None]
  - CRANIOTOMY [None]
  - DECREASED INTEREST [None]
  - DEFORMITY [None]
  - DIZZINESS [None]
  - DYSPHAGIA [None]
  - DYSPNOEA [None]
  - EAR DISCOMFORT [None]
  - EMOTIONAL DISTRESS [None]
  - ESCHERICHIA TEST POSITIVE [None]
  - FATIGUE [None]
  - FUNGAL INFECTION [None]
  - GAIT DISTURBANCE [None]
  - GASTROOESOPHAGEAL REFLUX DISEASE [None]
  - GENERAL PHYSICAL HEALTH DETERIORATION [None]
  - HAEMATURIA [None]
  - HEAD DISCOMFORT [None]
  - HEADACHE [None]
  - HEPATIC LESION [None]
  - HEPATIC STEATOSIS [None]
  - HEPATOMEGALY [None]
  - HERPES ZOSTER OTICUS [None]
  - HYPOPHAGIA [None]
  - INSOMNIA [None]
  - INTERVERTEBRAL DISC DEGENERATION [None]
  - INTERVERTEBRAL DISC PROTRUSION [None]
  - LIFE EXPECTANCY SHORTENED [None]
  - LUNG NEOPLASM [None]
  - MALIGNANT NEOPLASM PROGRESSION [None]
  - METASTASES TO BONE [None]
  - METASTASES TO CENTRAL NERVOUS SYSTEM [None]
  - METASTASES TO LUNG [None]
  - METASTASES TO LYMPH NODES [None]
  - MUSCLE SPASMS [None]
  - ORAL DISORDER [None]
  - OROPHARYNGEAL DISCOMFORT [None]
  - OSTEITIS DEFORMANS [None]
  - OSTEONECROSIS OF JAW [None]
  - OSTEOPENIA [None]
  - PAIN [None]
  - PAIN IN EXTREMITY [None]
  - PARAESTHESIA [None]
  - PELVIC FRACTURE [None]
  - PRESYNCOPE [None]
  - RASH ERYTHEMATOUS [None]
  - RASH PRURITIC [None]
  - SKIN EXFOLIATION [None]
  - SKIN HYPERPIGMENTATION [None]
  - SPINAL OSTEOARTHRITIS [None]
  - SPONDYLOLYSIS [None]
  - SWELLING FACE [None]
  - THYROIDECTOMY [None]
  - TOOTH EXTRACTION [None]
  - TYPE 2 DIABETES MELLITUS [None]
  - UTERINE LEIOMYOMA [None]
  - VIITH NERVE PARALYSIS [None]
  - VISION BLURRED [None]
